FAERS Safety Report 8915640 (Version 3)
Quarter: 2012Q4

REPORT INFORMATION
  Report Type: 
  Country: US (occurrence: US)
  Receive Date: 20121119
  Receipt Date: 20121219
  Transmission Date: 20130627
  Serious: No
  Sender: FDA-Public Use
  Company Number: US-VERTEX PHARMACEUTICAL INC.-2012-024620

PATIENT
  Age: 56 Year
  Sex: Female

DRUGS (4)
  1. VX-950 (TELAPREVIR) [Suspect]
     Indication: HEPATITIS C
     Dosage: 2 DF, tid
     Route: 048
     Dates: start: 20121031
  2. VX-950 (TELAPREVIR) [Suspect]
     Dosage: 2 DF, bid
     Route: 048
     Dates: start: 201211
  3. PEGASYS [Concomitant]
     Indication: HEPATITIS C
     Dosage: 180 ?g, weekly
     Route: 058
     Dates: start: 20121031
  4. RIBAVIRIN [Concomitant]
     Indication: HEPATITIS C
     Dosage: 600 mg am, 400 mg pm
     Dates: start: 20121031

REACTIONS (5)
  - Functional gastrointestinal disorder [Unknown]
  - Fatigue [Unknown]
  - Haemorrhoids [Not Recovered/Not Resolved]
  - Proctalgia [Not Recovered/Not Resolved]
  - Anorectal discomfort [Not Recovered/Not Resolved]
